FAERS Safety Report 7170735-9 (Version None)
Quarter: 2010Q4

REPORT INFORMATION
  Report Type: 
  Country: None (occurrence: None)
  Receive Date: 20101214
  Receipt Date: 20101214
  Transmission Date: 20110411
  Serious: No
  Sender: FDA-Public Use
  Company Number: None

PATIENT
  Age: 60 Year
  Sex: Female
  Weight: 56.6996 kg

DRUGS (1)
  1. PROPOXYPHENE HYDROCHLORIDE [Suspect]
     Indication: PAIN
     Dosage: 1 TABLET EVERY 6 HRS. PO
     Route: 048
     Dates: start: 20100828, end: 20101215

REACTIONS (6)
  - CHEST DISCOMFORT [None]
  - ENERGY INCREASED [None]
  - FATIGUE [None]
  - HEART RATE IRREGULAR [None]
  - PALPITATIONS [None]
  - PRODUCT QUALITY ISSUE [None]
